FAERS Safety Report 19913471 (Version 2)
Quarter: 2021Q4

REPORT INFORMATION
  Report Type: Spontaneous
  Country: DE (occurrence: DE)
  Receive Date: 20211004
  Receipt Date: 20211006
  Transmission Date: 20220303
  Serious: Yes (Hospitalization, Other)
  Sender: FDA-Public Use
  Company Number: DE-DCGMA-21192826

PATIENT
  Weight: 3.63 kg

DRUGS (4)
  1. CYTOTEC [Suspect]
     Active Substance: MISOPROSTOL
     Dosage: UNK
     Route: 064
  2. CYTOTEC [Suspect]
     Active Substance: MISOPROSTOL
     Dosage: UNK
     Route: 064
  3. MEPTAZINOL HYDROCHLORIDE [Suspect]
     Active Substance: MEPTAZINOL HYDROCHLORIDE
     Dosage: UNK
     Route: 064
  4. MEPTAZINOL HYDROCHLORIDE [Suspect]
     Active Substance: MEPTAZINOL HYDROCHLORIDE
     Dosage: UNK
     Route: 064

REACTIONS (4)
  - Maternal exposure timing unspecified [Unknown]
  - Maternal drugs affecting foetus [Unknown]
  - Neonatal dyspnoea [Unknown]
  - Neonatal disorder [Unknown]
